FAERS Safety Report 5113859-X (Version None)
Quarter: 2006Q3

REPORT INFORMATION
  Report Type: 
  Country: None (occurrence: None)
  Receive Date: 20060921
  Receipt Date: 20060921
  Transmission Date: 20061208
  Serious: No
  Sender: FDA-Public Use
  Company Number: None

PATIENT
  Sex: Male
  Weight: 90.7194 kg

DRUGS (1)
  1. SWAHSON VITAMINS DHEA 25 MG [Suspect]
     Dosage: 25 MG ONCE A DAY
     Dates: start: 20060401, end: 20060601

REACTIONS (1)
  - HYPOTRICHOSIS [None]
